FAERS Safety Report 15358467 (Version 2)
Quarter: 2018Q4

REPORT INFORMATION
  Report Type: Report from Study
  Country: None (occurrence: DE)
  Receive Date: 20180906
  Receipt Date: 20181022
  Transmission Date: 20190204
  Serious: Yes (Other)
  Sender: FDA-Public Use
  Company Number: DE-MEDAC PHARMA, INC.-2054690

PATIENT
  Age: 72 Year
  Sex: Female

DRUGS (12)
  1. FALITHROM [Suspect]
     Active Substance: PHENPROCOUMON
  2. VITAMIN D [Concomitant]
     Active Substance: CHOLECALCIFEROL
  3. METEX (METHOTREXATE SODIUM) [Suspect]
     Active Substance: METHOTREXATE SODIUM
     Indication: PRODUCT USED FOR UNKNOWN INDICATION
     Dates: end: 20170914
  4. RAMIPRIL. [Concomitant]
     Active Substance: RAMIPRIL
  5. TOCILIZUMAB. [Suspect]
     Active Substance: TOCILIZUMAB
     Route: 058
  6. PREDNISOLONE. [Concomitant]
     Active Substance: PREDNISOLONE
  7. FOLIC ACID. [Concomitant]
     Active Substance: FOLIC ACID
  8. METOPROLOL. [Concomitant]
     Active Substance: METOPROLOL
  9. AMLODIPINE [Concomitant]
     Active Substance: AMLODIPINE BESYLATE
  10. BIOTIN [Concomitant]
     Active Substance: BIOTIN
  11. DIGITOXIN [Concomitant]
     Active Substance: DIGITOXIN
  12. METFORMIN HYDROCHLORIDE. [Concomitant]
     Active Substance: METFORMIN HYDROCHLORIDE

REACTIONS (15)
  - Alopecia [Recovering/Resolving]
  - International normalised ratio decreased [Not Recovered/Not Resolved]
  - Sinusitis [Recovered/Resolved]
  - Platelet count decreased [Not Recovered/Not Resolved]
  - Rhinitis [Recovered/Resolved]
  - Drug interaction [Unknown]
  - Skin cancer [Recovering/Resolving]
  - Headache [Not Recovered/Not Resolved]
  - Diarrhoea [Recovered/Resolved]
  - Dizziness [Not Recovered/Not Resolved]
  - Nasopharyngitis [Recovered/Resolved]
  - Hair disorder [Recovering/Resolving]
  - Pain in extremity [Recovering/Resolving]
  - Intra-abdominal fluid collection [Not Recovered/Not Resolved]
  - Visual acuity reduced [Not Recovered/Not Resolved]

NARRATIVE: CASE EVENT DATE: 20170401
